FAERS Safety Report 20219161 (Version 5)
Quarter: 2022Q1

REPORT INFORMATION
  Report Type: Report from Study
  Country: US (occurrence: US)
  Receive Date: 20211222
  Receipt Date: 20220314
  Transmission Date: 20220423
  Serious: Yes (Hospitalization)
  Sender: FDA-Public Use
  Company Number: US-PFIZER INC-202101772195

PATIENT

DRUGS (70)
  1. INOTUZUMAB OZOGAMICIN [Suspect]
     Active Substance: INOTUZUMAB OZOGAMICIN
     Indication: B-cell type acute leukaemia
     Dosage: 0.9 MG
     Route: 042
     Dates: start: 20200311, end: 20200311
  2. INOTUZUMAB OZOGAMICIN [Suspect]
     Active Substance: INOTUZUMAB OZOGAMICIN
     Dosage: 0.9 MG
     Route: 042
     Dates: start: 20200319, end: 20200319
  3. INOTUZUMAB OZOGAMICIN [Suspect]
     Active Substance: INOTUZUMAB OZOGAMICIN
     Dosage: 0.9 MG
     Route: 042
     Dates: start: 20200327, end: 20200327
  4. INOTUZUMAB OZOGAMICIN [Suspect]
     Active Substance: INOTUZUMAB OZOGAMICIN
     Dosage: 0.75 MG
     Route: 042
     Dates: start: 20200730, end: 20200730
  5. INOTUZUMAB OZOGAMICIN [Suspect]
     Active Substance: INOTUZUMAB OZOGAMICIN
     Dosage: 0.75 MG
     Route: 042
     Dates: start: 20200806, end: 20200806
  6. INOTUZUMAB OZOGAMICIN [Suspect]
     Active Substance: INOTUZUMAB OZOGAMICIN
     Dosage: 0.75 MG
     Route: 042
     Dates: start: 20200813, end: 20200813
  7. CYTARABINE [Suspect]
     Active Substance: CYTARABINE
     Indication: B precursor type acute leukaemia
     Dosage: 70 MG, DAY 0 ONCE
     Route: 037
     Dates: start: 20191106, end: 20191106
  8. CYTARABINE [Suspect]
     Active Substance: CYTARABINE
     Dosage: 130 MG EACH, QD
     Route: 058
     Dates: start: 20191217, end: 20191220
  9. CYTARABINE [Suspect]
     Active Substance: CYTARABINE
     Dosage: 130 MG EACH, QD
     Route: 058
     Dates: start: 20191226, end: 20191229
  10. CYTARABINE [Suspect]
     Active Substance: CYTARABINE
     Dosage: 130 MG EACH, QD
     Route: 058
     Dates: start: 20200130, end: 20200202
  11. CYTARABINE [Suspect]
     Active Substance: CYTARABINE
     Dosage: 130 MG EACH, QD
     Route: 058
     Dates: start: 20200206, end: 20200209
  12. CYTARABINE [Suspect]
     Active Substance: CYTARABINE
     Dosage: 70 MG, ONCE
     Route: 037
     Dates: start: 20191217, end: 20191217
  13. CYTARABINE [Suspect]
     Active Substance: CYTARABINE
     Dosage: 70 MG, ONCE
     Route: 037
     Dates: start: 20191226, end: 20191226
  14. DOXORUBICIN HYDROCHLORIDE [Suspect]
     Active Substance: DOXORUBICIN HYDROCHLORIDE
     Indication: B precursor type acute leukaemia
     Dosage: 50 MG, X1
     Route: 042
     Dates: start: 20200924, end: 20200924
  15. DOXORUBICIN HYDROCHLORIDE [Suspect]
     Active Substance: DOXORUBICIN HYDROCHLORIDE
     Dosage: 50 MG, X1
     Route: 042
     Dates: start: 20201001, end: 20201001
  16. DOXORUBICIN HYDROCHLORIDE [Suspect]
     Active Substance: DOXORUBICIN HYDROCHLORIDE
     Dosage: 50 MG, X1
     Route: 042
     Dates: start: 20201013, end: 20201013
  17. METHOTREXATE SODIUM [Suspect]
     Active Substance: METHOTREXATE SODIUM
     Indication: B precursor type acute leukaemia
     Dosage: 15 MG, ONCE
     Route: 037
     Dates: start: 20191114, end: 20191114
  18. METHOTREXATE SODIUM [Suspect]
     Active Substance: METHOTREXATE SODIUM
     Dosage: 15 MG, ONCE
     Route: 037
     Dates: start: 20191121, end: 20191121
  19. METHOTREXATE SODIUM [Suspect]
     Active Substance: METHOTREXATE SODIUM
     Dosage: 15 MG, ONCE
     Route: 037
     Dates: start: 20191128, end: 20191128
  20. METHOTREXATE SODIUM [Suspect]
     Active Substance: METHOTREXATE SODIUM
     Dosage: 15 MG, ONCE
     Route: 037
     Dates: start: 20200311, end: 20200311
  21. METHOTREXATE SODIUM [Suspect]
     Active Substance: METHOTREXATE SODIUM
     Dosage: 15 MG, ONCE
     Route: 037
     Dates: start: 20200514, end: 20200514
  22. METHOTREXATE SODIUM [Suspect]
     Active Substance: METHOTREXATE SODIUM
     Dosage: 15 MG, ONCE
     Route: 037
     Dates: start: 20200618, end: 20200618
  23. METHOTREXATE SODIUM [Suspect]
     Active Substance: METHOTREXATE SODIUM
     Dosage: 15 MG, ONE TIME
     Route: 037
     Dates: start: 20200924, end: 20200924
  24. METHOTREXATE SODIUM [Suspect]
     Active Substance: METHOTREXATE SODIUM
     Dosage: 15 MG, ONCE
     Route: 037
     Dates: start: 20201110, end: 20201110
  25. METHOTREXATE SODIUM [Suspect]
     Active Substance: METHOTREXATE SODIUM
     Dosage: 15 MG, ONCE
     Route: 037
     Dates: start: 20201117, end: 20201117
  26. VINCRISTINE SULFATE [Suspect]
     Active Substance: VINCRISTINE SULFATE
     Indication: B precursor type acute leukaemia
     Dosage: 2 MG, X1
     Route: 042
     Dates: start: 20191107, end: 20191107
  27. VINCRISTINE SULFATE [Suspect]
     Active Substance: VINCRISTINE SULFATE
     Dosage: 2 MG, X1
     Route: 042
     Dates: start: 20191114, end: 20191114
  28. VINCRISTINE SULFATE [Suspect]
     Active Substance: VINCRISTINE SULFATE
     Dosage: 2 MG, X1
     Route: 042
     Dates: start: 20191121, end: 20191121
  29. VINCRISTINE SULFATE [Suspect]
     Active Substance: VINCRISTINE SULFATE
     Dosage: 2 MG, X1
     Route: 042
     Dates: start: 20191128, end: 20191128
  30. VINCRISTINE SULFATE [Suspect]
     Active Substance: VINCRISTINE SULFATE
     Dosage: 2 MG, X1
     Route: 042
     Dates: start: 20200103, end: 20200103
  31. VINCRISTINE SULFATE [Suspect]
     Active Substance: VINCRISTINE SULFATE
     Dosage: 2 MG, X1
     Route: 042
     Dates: start: 20200109, end: 20200109
  32. VINCRISTINE SULFATE [Suspect]
     Active Substance: VINCRISTINE SULFATE
     Dosage: 2 MG, X1
     Route: 042
     Dates: start: 20200213, end: 20200213
  33. VINCRISTINE SULFATE [Suspect]
     Active Substance: VINCRISTINE SULFATE
     Dosage: 2 MG, X1
     Route: 042
     Dates: start: 20200219, end: 20200219
  34. VINCRISTINE SULFATE [Suspect]
     Active Substance: VINCRISTINE SULFATE
     Dosage: 2 MG, X1
     Route: 042
     Dates: start: 20200514, end: 20200514
  35. VINCRISTINE SULFATE [Suspect]
     Active Substance: VINCRISTINE SULFATE
     Dosage: 2 MG, X1
     Route: 042
     Dates: start: 20200604, end: 20200604
  36. VINCRISTINE SULFATE [Suspect]
     Active Substance: VINCRISTINE SULFATE
     Dosage: 2 MG, X1
     Route: 042
     Dates: start: 20200618, end: 20200618
  37. VINCRISTINE SULFATE [Suspect]
     Active Substance: VINCRISTINE SULFATE
     Dosage: 2 MG, X1
     Route: 042
     Dates: start: 20200710, end: 20200710
  38. VINCRISTINE SULFATE [Suspect]
     Active Substance: VINCRISTINE SULFATE
     Dosage: 2 MG, X1
     Route: 042
     Dates: start: 20200924, end: 20200924
  39. VINCRISTINE SULFATE [Suspect]
     Active Substance: VINCRISTINE SULFATE
     Dosage: 2 MG, X1
     Route: 042
     Dates: start: 20201001, end: 20201001
  40. VINCRISTINE SULFATE [Suspect]
     Active Substance: VINCRISTINE SULFATE
     Dosage: 2 MG, X1
     Route: 042
     Dates: start: 20201013, end: 20201013
  41. VINCRISTINE SULFATE [Suspect]
     Active Substance: VINCRISTINE SULFATE
     Dosage: 2 MG, X1
     Route: 042
     Dates: start: 20201124, end: 20201124
  42. CYCLOPHOSPHAMIDE [Suspect]
     Active Substance: CYCLOPHOSPHAMIDE
     Indication: B precursor type acute leukaemia
     Dosage: 1720 MG IV INF X1
     Route: 042
     Dates: start: 20191217, end: 20191217
  43. CYCLOPHOSPHAMIDE [Suspect]
     Active Substance: CYCLOPHOSPHAMIDE
     Dosage: 1740 MG IV INF. X1
     Route: 042
     Dates: start: 20200130, end: 20200130
  44. CYCLOPHOSPHAMIDE [Suspect]
     Active Substance: CYCLOPHOSPHAMIDE
     Dosage: 2000 MG IV INF. ONCE
     Route: 042
     Dates: start: 20201110, end: 20201110
  45. DAUNORUBICIN [Suspect]
     Active Substance: DAUNORUBICIN
     Indication: B precursor type acute leukaemia
     Dosage: 45 MG, IV INF X1
     Route: 042
     Dates: start: 20191107, end: 20191107
  46. DAUNORUBICIN [Suspect]
     Active Substance: DAUNORUBICIN
     Dosage: 45 MG, IV INF X1
     Route: 042
     Dates: start: 20191114, end: 20191114
  47. DAUNORUBICIN [Suspect]
     Active Substance: DAUNORUBICIN
     Dosage: 45 MG, IV INF X1
     Route: 042
     Dates: start: 20191121, end: 20191121
  48. DAUNORUBICIN [Suspect]
     Active Substance: DAUNORUBICIN
     Dosage: 45 MG, IV INF X1
     Route: 042
     Dates: start: 20191128, end: 20191128
  49. DEXAMETHASONE [Suspect]
     Active Substance: DEXAMETHASONE
     Indication: B precursor type acute leukaemia
     Dosage: 10 MG, BID
     Route: 048
     Dates: start: 20200924, end: 20201001
  50. DEXAMETHASONE [Suspect]
     Active Substance: DEXAMETHASONE
     Dosage: 10 MG, BID
     Route: 048
     Dates: start: 20201013, end: 20201019
  51. LEUCOVORIN CALCIUM [Suspect]
     Active Substance: LEUCOVORIN CALCIUM
     Indication: B precursor type acute leukaemia
     Dosage: 28 MG, X2
     Route: 042
     Dates: start: 20200516, end: 20200516
  52. LEUCOVORIN CALCIUM [Suspect]
     Active Substance: LEUCOVORIN CALCIUM
     Dosage: 28 MG
     Route: 042
     Dates: start: 20200517, end: 20200517
  53. LEUCOVORIN CALCIUM [Suspect]
     Active Substance: LEUCOVORIN CALCIUM
     Dosage: 29 MG, X2
     Route: 042
     Dates: start: 20200606, end: 20200606
  54. LEUCOVORIN CALCIUM [Suspect]
     Active Substance: LEUCOVORIN CALCIUM
     Dosage: 29 MG, X2
     Route: 042
     Dates: start: 20200607, end: 20200607
  55. LEUCOVORIN CALCIUM [Suspect]
     Active Substance: LEUCOVORIN CALCIUM
     Dosage: 29 MG, X2
     Route: 042
     Dates: start: 20200620, end: 20200620
  56. LEUCOVORIN CALCIUM [Suspect]
     Active Substance: LEUCOVORIN CALCIUM
     Dosage: 29 MG, X2
     Route: 042
     Dates: start: 20200621, end: 20200621
  57. LEUCOVORIN CALCIUM [Suspect]
     Active Substance: LEUCOVORIN CALCIUM
     Dosage: 29 MG, X2
     Route: 042
     Dates: start: 20200712, end: 20200712
  58. LEUCOVORIN CALCIUM [Suspect]
     Active Substance: LEUCOVORIN CALCIUM
     Dosage: 29 MG, X2
     Route: 042
     Dates: start: 20200713, end: 20200713
  59. MERCAPTOPURINE [Suspect]
     Active Substance: MERCAPTOPURINE
     Indication: B precursor type acute leukaemia
     Dosage: 103.5 MG, QD
     Route: 048
     Dates: start: 20191217, end: 20191231
  60. MERCAPTOPURINE [Suspect]
     Active Substance: MERCAPTOPURINE
     Dosage: 107.14 MG, QD
     Route: 048
     Dates: start: 20200130, end: 20200212
  61. MERCAPTOPURINE [Suspect]
     Active Substance: MERCAPTOPURINE
     Dosage: 46.4 MG, QD
     Route: 048
     Dates: start: 20200514, end: 20200527
  62. MERCAPTOPURINE [Suspect]
     Active Substance: MERCAPTOPURINE
     Dosage: 46.4 MG, QD(PT MISSED 4 DOSES)
     Route: 048
     Dates: start: 20200604, end: 20200617
  63. MERCAPTOPURINE [Suspect]
     Active Substance: MERCAPTOPURINE
     Dosage: 46.4 MG, QD
     Route: 048
     Dates: start: 20200618, end: 20200701
  64. MERCAPTOPURINE [Suspect]
     Active Substance: MERCAPTOPURINE
     Dosage: 46.4 MG, QD
     Route: 048
     Dates: start: 20200710, end: 20200724
  65. PEGASPARGASE [Suspect]
     Active Substance: PEGASPARGASE
     Indication: B precursor type acute leukaemia
     Dosage: 4550 IU, ONCE
     Route: 042
     Dates: start: 20191110, end: 20191110
  66. PEGASPARGASE [Suspect]
     Active Substance: PEGASPARGASE
     Dosage: 4300 IU, ONCE
     Route: 042
     Dates: start: 20200103, end: 20200103
  67. PEGASPARGASE [Suspect]
     Active Substance: PEGASPARGASE
     Dosage: 5000 IU, ONCE
     Route: 042
     Dates: start: 20200928, end: 20200928
  68. PEGASPARGASE [Suspect]
     Active Substance: PEGASPARGASE
     Dosage: 5000 IU, ONCE
     Route: 042
     Dates: start: 20201124, end: 20201124
  69. PREDNISOLONE [Suspect]
     Active Substance: PREDNISOLONE
     Indication: B precursor type acute leukaemia
     Dosage: 55 MG, BID, *24NOV HELD ONE DOSE, 26NOV HELD, 28NOV RESUME.
     Route: 048
     Dates: start: 20191106, end: 20191204
  70. THIOGUANINE [Suspect]
     Active Substance: THIOGUANINE
     Indication: B precursor type acute leukaemia
     Dosage: 120 MG, 1X/DAY (QD)
     Route: 048
     Dates: start: 20201110, end: 20201123

REACTIONS (2)
  - Second primary malignancy [Not Recovered/Not Resolved]
  - Acute myeloid leukaemia [Not Recovered/Not Resolved]

NARRATIVE: CASE EVENT DATE: 20210728
